FAERS Safety Report 5375393-1 (Version None)
Quarter: 2007Q2

REPORT INFORMATION
  Report Type: 
  Country: None (occurrence: None)
  Receive Date: 20070629
  Receipt Date: 20070619
  Transmission Date: 20071010
  Serious: Yes (Other)
  Sender: FDA-Public Use
  Company Number: IE-PFIZER INC-2007018701

PATIENT
  Age: 72 Year
  Sex: Male
  Weight: 95.5 kg

DRUGS (11)
  1. LYRICA [Suspect]
     Indication: MYALGIA
     Route: 048
     Dates: start: 20051201, end: 20060101
  2. LYRICA [Suspect]
     Indication: NEUROPATHY PERIPHERAL
  3. LYRICA [Suspect]
     Indication: PARAESTHESIA
  4. DIGOXIN [Concomitant]
     Indication: ATRIAL FIBRILLATION
     Route: 048
  5. CARVEDILOL [Concomitant]
     Indication: CONGESTIVE CARDIOMYOPATHY
     Route: 048
  6. FRUSEMIDE [Concomitant]
     Indication: CONGESTIVE CARDIOMYOPATHY
     Route: 048
     Dates: start: 20000101
  7. LOSARTAN POTASSIUM [Concomitant]
     Indication: CONGESTIVE CARDIOMYOPATHY
     Route: 048
     Dates: start: 20000101
  8. ALDACTONE [Concomitant]
     Indication: CONGESTIVE CARDIOMYOPATHY
     Route: 048
     Dates: start: 20000101
  9. GLYCERYL TRINITRATE [Concomitant]
     Indication: CONGESTIVE CARDIOMYOPATHY
     Route: 062
     Dates: start: 20000101
  10. WARFARIN SODIUM [Concomitant]
     Indication: ATRIAL FIBRILLATION
  11. BENAZEPRIL HYDROCHLORIDE [Concomitant]

REACTIONS (12)
  - CARDIAC FAILURE [None]
  - CARDIOMYOPATHY [None]
  - COORDINATION ABNORMAL [None]
  - CREPITATIONS [None]
  - DRY MOUTH [None]
  - DYSPNOEA PAROXYSMAL NOCTURNAL [None]
  - GAIT DISTURBANCE [None]
  - HEART RATE INCREASED [None]
  - METABOLIC FUNCTION TEST ABNORMAL [None]
  - OEDEMA PERIPHERAL [None]
  - ORTHOPNOEA [None]
  - WEIGHT INCREASED [None]
